FAERS Safety Report 8420848-6 (Version None)
Quarter: 2012Q2

REPORT INFORMATION
  Report Type: 
  Country: None (occurrence: None)
  Receive Date: 20120608
  Receipt Date: 20120531
  Transmission Date: 20120825
  Serious: Yes (Life-Threatening, Hospitalization, Other)
  Sender: FDA-Public Use
  Company Number: US-BAYER-201032306NA

PATIENT
  Age: 39 Year
  Sex: Female
  Weight: 104.31 kg

DRUGS (13)
  1. ALBUTEROL [Concomitant]
     Indication: ASTHMA
     Dosage: UNK UNK, PRN
  2. MOTRIN [Concomitant]
  3. YASMIN [Suspect]
     Indication: DYSFUNCTIONAL UTERINE BLEEDING
     Dosage: UNK
     Dates: start: 20031201, end: 20040201
  4. COPAXONE [Concomitant]
     Dosage: 20 MG, HS
     Route: 048
  5. ZYRTEC [Concomitant]
  6. PHENERVENT LA [Concomitant]
  7. TOPAMAX [Concomitant]
  8. ASTHMA MEDICATIONS [NOS] [Concomitant]
  9. NSAID'S [Concomitant]
  10. GYNAZOLE [Concomitant]
  11. YASMIN [Suspect]
     Indication: PRODUCT USED FOR UNKNOWN INDICATION
     Dosage: UNK
     Route: 048
     Dates: start: 20031201, end: 20040201
  12. ASPIRIN [Concomitant]
  13. ADVAIR DISKUS 100/50 [Concomitant]
     Indication: ASTHMA
     Dosage: 1 PUFF(S), BID
     Route: 055

REACTIONS (8)
  - DEEP VEIN THROMBOSIS [None]
  - THROMBOPHLEBITIS SUPERFICIAL [None]
  - DYSPNOEA [None]
  - PULMONARY EMBOLISM [None]
  - UTERINE LEIOMYOMA [None]
  - BLOOD PRESSURE INCREASED [None]
  - FLUSHING [None]
  - HEADACHE [None]
